FAERS Safety Report 7600165 (Version 3)
Quarter: 2013Q3

REPORT INFORMATION
  Report Type: Spontaneous
  Country: US (occurrence: US)
  Receive Date: 20100921
  Receipt Date: 20130816
  Transmission Date: 20140515
  Serious: Yes (Hospitalization, Other)
  Sender: FDA-Public Use
  Company Number: US-ELI_LILLY_AND_COMPANY-US201009003023

PATIENT
  Age: 58 Year
  Sex: Female

DRUGS (8)
  1. DULOXETINE HYDROCHLORIDE [Suspect]
     Dosage: 30 MG, DAILY (1/D)
  2. AMITRIPTYLINE [Concomitant]
  3. CLONAZEPAM [Concomitant]
  4. OXYCODONE [Concomitant]
  5. PROPRANOLOL [Concomitant]
  6. ALLOPURINOL [Concomitant]
  7. COLCHICINE [Concomitant]
  8. ACETAMINOPHEN [Concomitant]

REACTIONS (4)
  - Hepatotoxicity [Recovered/Resolved]
  - Loss of consciousness [Recovered/Resolved]
  - Confusional state [Recovered/Resolved]
  - Depressed level of consciousness [Recovered/Resolved]
